FAERS Safety Report 18300732 (Version 3)
Quarter: 2020Q4

REPORT INFORMATION
  Report Type: Spontaneous
  Country: US (occurrence: US)
  Receive Date: 20200923
  Receipt Date: 20201015
  Transmission Date: 20210113
  Serious: Yes (Hospitalization, Other)
  Sender: FDA-Public Use
  Company Number: US-ASTRAZENECA-2020SF21261

PATIENT
  Age: 60 Year
  Sex: Male
  Weight: 124.7 kg

DRUGS (1)
  1. BYDUREON BCISE [Suspect]
     Active Substance: EXENATIDE
     Indication: BLOOD GLUCOSE INCREASED
     Dosage: 2 MG ONCE A WEEK
     Route: 058
     Dates: start: 20200916

REACTIONS (9)
  - Lung disorder [Unknown]
  - Prostatic disorder [Unknown]
  - Product dose omission issue [Unknown]
  - Needle issue [Unknown]
  - Cardiac disorder [Unknown]
  - Weight decreased [Unknown]
  - Injection site haemorrhage [Unknown]
  - Device malfunction [Unknown]
  - Atrial fibrillation [Unknown]

NARRATIVE: CASE EVENT DATE: 2020
